FAERS Safety Report 5826487-5 (Version None)
Quarter: 2008Q3

REPORT INFORMATION
  Report Type: 
  Country: None (occurrence: None)
  Receive Date: 20080729
  Receipt Date: 20080722
  Transmission Date: 20090109
  Serious: Yes (Hospitalization)
  Sender: FDA-Public Use
  Company Number: GR-ABBOTT-08P-066-0434875-00

PATIENT
  Age: 36 Year
  Sex: Male
  Weight: 65 kg

DRUGS (5)
  1. ZEMPLAR [Suspect]
     Indication: HYPERPARATHYROIDISM SECONDARY
     Route: 042
     Dates: start: 20070505
  2. ERYTHROPOIETIN HUMAN [Concomitant]
     Indication: ANAEMIA
     Route: 042
     Dates: start: 20070201
  3. NEUROBION [Concomitant]
     Indication: VITAMIN SUPPLEMENTATION
     Route: 042
     Dates: start: 20070201
  4. SEVELAMER [Concomitant]
     Indication: HYPERPHOSPHATAEMIA
     Route: 048
     Dates: start: 20070701
  5. FOLIC ACID [Concomitant]
     Indication: ANAEMIA
     Route: 048
     Dates: start: 20071101

REACTIONS (1)
  - POLYARTHRITIS [None]
